FAERS Safety Report 4928848-5 (Version None)
Quarter: 2006Q1

REPORT INFORMATION
  Report Type: 
  Country: None (occurrence: None)
  Receive Date: 20060301
  Receipt Date: 20060222
  Transmission Date: 20060701
  Serious: Yes (Other)
  Sender: FDA-Public Use
  Company Number: PHEH2006US02483

PATIENT
  Age: 67 Year
  Sex: Male

DRUGS (2)
  1. M.V.I. [Concomitant]
  2. ELIDEL [Suspect]
     Indication: PRURITUS
     Dosage: UNK, QD
     Route: 061
     Dates: start: 20040429, end: 20060101

REACTIONS (5)
  - ALOPECIA [None]
  - BASAL CELL CARCINOMA [None]
  - MELANOCYTIC NAEVUS [None]
  - MOLE EXCISION [None]
  - SKIN NEOPLASM EXCISION [None]
